FAERS Safety Report 11804547 (Version 2)
Quarter: 2015Q4

REPORT INFORMATION
  Report Type: Spontaneous
  Country: JP (occurrence: JP)
  Receive Date: 20151204
  Receipt Date: 20151215
  Transmission Date: 20160305
  Serious: Yes (Other)
  Sender: FDA-Public Use
  Company Number: PHJP2015JP021475

PATIENT
  Age: 61 Year
  Sex: Male

DRUGS (2)
  1. VOLTAREN SUP [Suspect]
     Active Substance: DICLOFENAC SODIUM
     Indication: INTERVERTEBRAL DISCITIS
     Dosage: 200 MG, UNK
     Route: 054
  2. VOLTAREN SUP [Suspect]
     Active Substance: DICLOFENAC SODIUM
     Dosage: 50 MG, UNK
     Route: 054
     Dates: end: 20151203

REACTIONS (1)
  - Diverticulitis [Unknown]
